FAERS Safety Report 25216432 (Version 3)
Quarter: 2025Q2

REPORT INFORMATION
  Report Type: Report from Study
  Country: US (occurrence: US)
  Receive Date: 20250418
  Receipt Date: 20250630
  Transmission Date: 20250717
  Serious: Yes (Other)
  Sender: ROCHE
  Company Number: US-ROCHE-3362595

PATIENT
  Age: 59 Year
  Sex: Female

DRUGS (19)
  1. OCRELIZUMAB [Suspect]
     Active Substance: OCRELIZUMAB
     Indication: Multiple sclerosis
     Dosage: SUBSEQUENT ADMINISTRATIONS EVERY 6 MONTHS
     Route: 042
     Dates: start: 20200221, end: 20200306
  2. OCRELIZUMAB [Suspect]
     Active Substance: OCRELIZUMAB
     Dosage: SUBSEQUENT DOSES OF OCRELIZUMAB: 19/MAR/2021, 30/SEP/2021, 01/APR/2022, 07/OCT/2022, 07/APR/2023
     Route: 042
     Dates: start: 20200916
  3. OCRELIZUMAB [Suspect]
     Active Substance: OCRELIZUMAB
     Route: 042
     Dates: start: 20200221, end: 20200221
  4. OCRELIZUMAB [Suspect]
     Active Substance: OCRELIZUMAB
     Route: 042
     Dates: start: 20200306, end: 20200306
  5. OCRELIZUMAB [Suspect]
     Active Substance: OCRELIZUMAB
     Dosage: SUBSEQUENT DOSES OF OCRELIZUMAB: 19/MAR/2021, 30/SEP/2021, 01/APR/2022, 07/OCT/2022, 07/APR/2023
     Route: 042
     Dates: start: 20210930
  6. OCRELIZUMAB [Suspect]
     Active Substance: OCRELIZUMAB
     Dosage: SUBSEQUENT DOSES OF OCRELIZUMAB: 19/MAR/2021, 30/SEP/2021, 01/APR/2022, 07/OCT/2022, 07/APR/2023
     Route: 042
     Dates: start: 20210319
  7. OCRELIZUMAB [Suspect]
     Active Substance: OCRELIZUMAB
     Dosage: SUBSEQUENT DOSES OF OCRELIZUMAB: 19/MAR/2021, 30/SEP/2021, 01/APR/2022, 07/OCT/2022, 07/APR/2023
     Route: 042
     Dates: start: 20220401
  8. OCRELIZUMAB [Suspect]
     Active Substance: OCRELIZUMAB
     Dosage: SUBSEQUENT DOSES OF OCRELIZUMAB: 19/MAR/2021, 30/SEP/2021, 01/APR/2022, 07/OCT/2022, 07/APR/2023
     Route: 042
     Dates: start: 20221007
  9. OCRELIZUMAB [Suspect]
     Active Substance: OCRELIZUMAB
     Dosage: SUBSEQUENT DOSES OF OCRELIZUMAB: 19/MAR/2021, 30/SEP/2021, 01/APR/2022, 07/OCT/2022, 07/APR/2023
     Route: 042
     Dates: start: 20230407
  10. ADULT MULTIVITAMIN [Concomitant]
  11. ACETAMINOPHEN [Concomitant]
     Active Substance: ACETAMINOPHEN
  12. ASPIRIN [Concomitant]
     Active Substance: ASPIRIN
  13. CAFFEINE [Concomitant]
     Active Substance: CAFFEINE
  14. CETIRIZINE HYDROCHLORIDE [Concomitant]
     Active Substance: CETIRIZINE HYDROCHLORIDE
  15. CYANOCOBALAMIN [Concomitant]
     Active Substance: CYANOCOBALAMIN
  16. LOSARTAN POTASSIUM [Concomitant]
     Active Substance: LOSARTAN POTASSIUM
  17. SIMVASTATIN [Concomitant]
     Active Substance: SIMVASTATIN
  18. MONTELUKAST SODIUM [Concomitant]
     Active Substance: MONTELUKAST SODIUM
  19. EVUSHELD [Concomitant]
     Active Substance: CILGAVIMAB\TIXAGEVIMAB
     Dates: start: 20220804

REACTIONS (1)
  - Invasive ductal breast carcinoma [Not Recovered/Not Resolved]

NARRATIVE: CASE EVENT DATE: 20230401
